FAERS Safety Report 8376191-7 (Version None)
Quarter: 2012Q2

REPORT INFORMATION
  Report Type: 
  Country: None (occurrence: None)
  Receive Date: 20120522
  Receipt Date: 20120516
  Transmission Date: 20120825
  Serious: Yes (Hospitalization)
  Sender: FDA-Public Use
  Company Number: US-BAYER-2012-009578

PATIENT
  Age: 25 Year
  Sex: Female
  Weight: 63.039 kg

DRUGS (4)
  1. YAZ [Suspect]
     Indication: ENDOMETRIOSIS
  2. YAZ [Suspect]
     Indication: CONTRACEPTION
     Dosage: UNK
     Route: 048
     Dates: start: 20081101, end: 20100201
  3. NAPROXEN (ALEVE) [Concomitant]
     Dosage: UNK UNK, PRN
     Route: 048
     Dates: start: 20040101
  4. ACETAMINOPHEN [Concomitant]
     Dosage: UNK UNK, PRN
     Route: 048
     Dates: start: 20040101

REACTIONS (3)
  - ABDOMINAL PAIN [None]
  - CHOLELITHIASIS [None]
  - CHOLECYSTITIS ACUTE [None]
